FAERS Safety Report 5030778-8 (Version None)
Quarter: 2006Q2

REPORT INFORMATION
  Report Type: 
  Country: None (occurrence: None)
  Receive Date: 20060621
  Receipt Date: 20060608
  Transmission Date: 20061013
  Serious: Yes (Other)
  Sender: FDA-Public Use
  Company Number: US-ROCHE-451273

PATIENT
  Sex: Female
  Weight: 63.5 kg

DRUGS (2)
  1. ACCUTANE [Suspect]
     Indication: ACNE
     Route: 048
     Dates: start: 19991011, end: 20000615
  2. LORTAB [Concomitant]
     Indication: PAIN
     Dates: start: 20041209

REACTIONS (6)
  - APPENDICITIS [None]
  - DRUG EXPOSURE BEFORE PREGNANCY [None]
  - GLOMERULONEPHRITIS PROLIFERATIVE [None]
  - NO ADVERSE EFFECT [None]
  - NORMOCHROMIC NORMOCYTIC ANAEMIA [None]
  - PREGNANCY [None]
